FAERS Safety Report 16549579 (Version 1)
Quarter: 2019Q3

REPORT INFORMATION
  Report Type: Report from Study
  Country: IT (occurrence: IT)
  Receive Date: 20190710
  Receipt Date: 20190710
  Transmission Date: 20191004
  Serious: Yes (Hospitalization, Other)
  Sender: FDA-Public Use
  Company Number: IT-JNJFOC-20190633605

PATIENT
  Age: 83 Year
  Sex: Female

DRUGS (1)
  1. TRAMADOL HYDROCHLORIDE DROPS [Suspect]
     Active Substance: TRAMADOL HYDROCHLORIDE
     Indication: ARTHRALGIA
     Dosage: 125 GTT ONCE
     Route: 048
     Dates: start: 20190605, end: 20190605

REACTIONS (4)
  - Vertigo [Recovering/Resolving]
  - Bradypnoea [Recovering/Resolving]
  - Nausea [Recovering/Resolving]
  - Incorrect dose administered [Recovering/Resolving]

NARRATIVE: CASE EVENT DATE: 20190605
